FAERS Safety Report 9909626 (Version 1)
Quarter: 2014Q1

REPORT INFORMATION
  Report Type: Spontaneous
  Country: US (occurrence: None)
  Receive Date: 20140213
  Receipt Date: 20140213
  Transmission Date: 20141002
  Serious: Yes (Death, Other)
  Sender: FDA-Public Use
  Company Number: AUR-APL-2014-00958

PATIENT
  Age: 31 Year
  Sex: Male

DRUGS (6)
  1. CITALOPRAM (CITALOPRAM) [Suspect]
     Indication: PRODUCT USED FOR UNKNOWN INDICATION
  2. LAMOTRIGINE (LAMOTRIGINE) [Suspect]
  3. HEROIN (DIAMORPHINE) (DIAMORPHINE) [Suspect]
     Route: 048
  4. HYDROCODONE (HYDROCODONE) [Suspect]
  5. AMPHETAMINE/DEXTROAMPHETAMINE [Suspect]
  6. ESZOPICLONE [Suspect]

REACTIONS (6)
  - Completed suicide [None]
  - Intentional self-injury [None]
  - Toxicity to various agents [None]
  - Exposure via ingestion [None]
  - Respiratory arrest [None]
  - Cardiac arrest [None]
